FAERS Safety Report 17862381 (Version 1)
Quarter: 2020Q2

REPORT INFORMATION
  Report Type: Spontaneous
  Country: DE (occurrence: DE)
  Receive Date: 20200604
  Receipt Date: 20200604
  Transmission Date: 20200714
  Serious: Yes (Other)
  Sender: FDA-Public Use
  Company Number: DE-BRACCO-2020DE02109

PATIENT
  Age: 32 Year
  Sex: Female

DRUGS (3)
  1. GADOVIST [Suspect]
     Active Substance: GADOBUTROL
     Indication: MAGNETIC RESONANCE IMAGING BRAIN
     Dosage: 15 ML, ONCE
     Route: 042
     Dates: start: 20200318, end: 20200318
  2. ASPIRIN. [Concomitant]
     Active Substance: ASPIRIN
     Dosage: 100 MG, QD
     Dates: start: 20200319
  3. PROHANCE [Suspect]
     Active Substance: GADOTERIDOL
     Indication: MAGNETIC RESONANCE IMAGING BRAIN
     Dosage: 20 ML, ONCE
     Route: 042
     Dates: start: 20200325, end: 20200325

REACTIONS (10)
  - Nontherapeutic agent blood positive [Unknown]
  - Neck pain [Unknown]
  - Feeling abnormal [Unknown]
  - Paraesthesia [Unknown]
  - Somnolence [Unknown]
  - Dizziness [Recovering/Resolving]
  - Hypoaesthesia [Unknown]
  - Paraesthesia [Recovering/Resolving]
  - Mental disorder [Unknown]
  - Fatigue [Recovering/Resolving]

NARRATIVE: CASE EVENT DATE: 20200325
